FAERS Safety Report 10206040 (Version 1)
Quarter: 2014Q2

REPORT INFORMATION
  Report Type: Spontaneous
  Country: US (occurrence: None)
  Receive Date: 20140527
  Receipt Date: 20140527
  Transmission Date: 20141212
  Serious: Yes (Hospitalization)
  Sender: FDA-Public Use
  Company Number: None

PATIENT
  Age: 56 Year
  Sex: Female
  Weight: 77.3 kg

DRUGS (12)
  1. SIMEPREVIR [Suspect]
     Route: 048
     Dates: start: 20140225
  2. SOFOSBUVIR [Suspect]
     Route: 048
  3. LACTULOSE [Concomitant]
  4. TAPAZOLE [Concomitant]
  5. PROTONIX [Concomitant]
  6. RIFAXIMIN [Concomitant]
  7. LASIX [Concomitant]
  8. ATARAX [Concomitant]
  9. PHENERGAN [Concomitant]
  10. ALDACTONE [Concomitant]
  11. ULTRAM [Concomitant]
  12. TRAZODONE [Concomitant]

REACTIONS (2)
  - Encephalopathy [None]
  - Constipation [None]
